FAERS Safety Report 7332039-0 (Version None)
Quarter: 2011Q1

REPORT INFORMATION
  Report Type: 
  Country: None (occurrence: None)
  Receive Date: 20110304
  Receipt Date: 20110222
  Transmission Date: 20110831
  Serious: Yes (Life-Threatening, Hospitalization, Other)
  Sender: FDA-Public Use
  Company Number: JP-AMGEN-JPNCT2010007481

PATIENT
  Age: 59 Year
  Sex: Male
  Weight: 56 kg

DRUGS (10)
  1. PANITUMUMAB [Suspect]
     Indication: COLORECTAL CANCER
     Dosage: 6 MG/KG, Q2WK
     Route: 041
     Dates: start: 20100709, end: 20101126
  2. JUVELA N [Concomitant]
     Route: 048
  3. PREDNISOLONE [Concomitant]
     Route: 048
  4. PARIET [Concomitant]
     Dosage: UNK
     Route: 048
  5. CALCIUM LEVOFOLINATE [Concomitant]
     Indication: COLORECTAL CANCER
     Route: 041
     Dates: start: 20100806, end: 20100806
  6. FLUOROURACIL [Concomitant]
     Route: 041
     Dates: start: 20100806, end: 20100806
  7. FLUOROURACIL [Concomitant]
     Indication: COLORECTAL CANCER
     Route: 040
     Dates: start: 20100806, end: 20100806
  8. ALLELOCK [Concomitant]
     Route: 048
  9. MINOMYCIN [Concomitant]
     Dosage: UNK
     Route: 048
  10. IRINOTECAN HCL [Concomitant]
     Indication: COLORECTAL CANCER
     Route: 041
     Dates: start: 20100806, end: 20100806

REACTIONS (3)
  - HYPOMAGNESAEMIA [None]
  - DERMATITIS ACNEIFORM [None]
  - SKIN EXFOLIATION [None]
